FAERS Safety Report 8131578-2 (Version None)
Quarter: 2012Q1

REPORT INFORMATION
  Report Type: 
  Country: None (occurrence: None)
  Receive Date: 20120213
  Receipt Date: 20120208
  Transmission Date: 20120608
  Serious: No
  Sender: FDA-Public Use
  Company Number: US-PFIZER INC-2012035274

PATIENT
  Sex: Female
  Weight: 88.4 kg

DRUGS (5)
  1. ABILIFY [Concomitant]
     Indication: BIPOLAR DISORDER
     Dosage: 15 MG, DAILY
  2. IBUPROFEN (ADVIL) [Suspect]
     Indication: MIGRAINE
     Dosage: 200 MG, AS NEEDED
     Route: 048
  3. AXERT [Concomitant]
     Indication: MIGRAINE
     Dosage: 12.5 MG, AS NEEDED
  4. ADVIL PM [Suspect]
     Dosage: UNK
     Dates: start: 20120208
  5. HYDROCHLOROTHIAZIDE [Concomitant]
     Indication: HYPERTENSION
     Dosage: 25 MG, DAILY

REACTIONS (3)
  - ASTHENIA [None]
  - SOMNOLENCE [None]
  - SNEEZING [None]
